FAERS Safety Report 18967155 (Version 1)
Quarter: 2021Q1

REPORT INFORMATION
  Report Type: Spontaneous
  Country: US (occurrence: US)
  Receive Date: 20210304
  Receipt Date: 20210304
  Transmission Date: 20210420
  Serious: Yes (Other)
  Sender: FDA-Public Use
  Company Number: US-SUN PHARMACEUTICAL INDUSTRIES LTD-2021R1-283438

PATIENT
  Age: 36 Year
  Sex: Male

DRUGS (2)
  1. CAFFEINE. [Suspect]
     Active Substance: CAFFEINE
     Indication: PRODUCT USED FOR UNKNOWN INDICATION
     Dosage: 640 MILLIGRAM , UNK
     Route: 065
  2. CAFFEINE. [Suspect]
     Active Substance: CAFFEINE
     Indication: PRODUCT USED FOR UNKNOWN INDICATION
     Dosage: 8 STACKERS , UNK
     Route: 065

REACTIONS (1)
  - Ischaemic stroke [Recovered/Resolved]
